FAERS Safety Report 5975832-9 (Version None)
Quarter: 2008Q4

REPORT INFORMATION
  Report Type: 
  Country: None (occurrence: None)
  Receive Date: 20081202
  Receipt Date: 20081126
  Transmission Date: 20090506
  Serious: Yes (Hospitalization, Other)
  Sender: FDA-Public Use
  Company Number: A0705534A

PATIENT
  Age: 55 Year
  Sex: Male
  Weight: 122.3 kg

DRUGS (5)
  1. AVANDIA [Suspect]
     Dosage: 4MG PER DAY
     Route: 048
     Dates: start: 20050713, end: 20060505
  2. VIAGRA [Concomitant]
  3. LISINOPRIL [Concomitant]
  4. GLUCOTROL [Concomitant]
     Dates: start: 20050601
  5. GLUCOPHAGE [Concomitant]
     Dates: start: 20050601

REACTIONS (16)
  - CARDIAC FAILURE CONGESTIVE [None]
  - CONGESTIVE CARDIOMYOPATHY [None]
  - COUGH [None]
  - DYSPNOEA [None]
  - DYSPNOEA EXERTIONAL [None]
  - EJECTION FRACTION DECREASED [None]
  - LEFT VENTRICULAR DYSFUNCTION [None]
  - MITRAL VALVE INCOMPETENCE [None]
  - MYOCARDIAL INFARCTION [None]
  - NOCTURNAL DYSPNOEA [None]
  - ORTHOPNOEA [None]
  - POLYCYTHAEMIA [None]
  - PULMONARY CONGESTION [None]
  - PULMONARY HYPERTENSION [None]
  - TRICUSPID VALVE INCOMPETENCE [None]
  - VENTRICULAR HYPOKINESIA [None]
